FAERS Safety Report 6385757-5 (Version None)
Quarter: 2009Q4

REPORT INFORMATION
  Report Type: 
  Country: None (occurrence: None)
  Receive Date: 20091002
  Receipt Date: 20081002
  Transmission Date: 20100525
  Serious: No
  Sender: FDA-Public Use
  Company Number: US-ASTRAZENECA-2008UW21312

PATIENT
  Age: 73 Year
  Sex: Female

DRUGS (6)
  1. ARIMIDEX [Suspect]
     Route: 048
     Dates: start: 20080501
  2. LIPITOR [Concomitant]
  3. METOPROLOL [Concomitant]
  4. MAXZIDE [Concomitant]
  5. ZETIA [Concomitant]
  6. LEXAPRO [Concomitant]

REACTIONS (4)
  - ARTHRITIS [None]
  - FATIGUE [None]
  - HEADACHE [None]
  - NIGHT SWEATS [None]
